FAERS Safety Report 5899640-2 (Version None)
Quarter: 2008Q3

REPORT INFORMATION
  Report Type: 
  Country: None (occurrence: None)
  Receive Date: 20080926
  Receipt Date: 20080918
  Transmission Date: 20090109
  Serious: Yes (Hospitalization)
  Sender: FDA-Public Use
  Company Number: CA-BAYER-200832939NA

PATIENT
  Age: 94 Year
  Sex: Female

DRUGS (6)
  1. AVELOX [Suspect]
     Indication: DRUG USE FOR UNKNOWN INDICATION
     Dosage: TOTAL DAILY DOSE: 400 MG  UNIT DOSE: 400 MG
     Route: 048
  2. CALCIUM CARBONATE [Concomitant]
     Route: 048
  3. DOCUSATE SODIUM [Concomitant]
     Route: 048
  4. HEPARIN SODIUM [Concomitant]
     Route: 040
  5. NORTRIPTYLINE HCL [Concomitant]
     Route: 048
  6. VITAMIN D [Concomitant]

REACTIONS (1)
  - HYPOGLYCAEMIA [None]
